FAERS Safety Report 23976211 (Version 1)
Quarter: 2024Q2

REPORT INFORMATION
  Report Type: Spontaneous
  Country: PE (occurrence: PE)
  Receive Date: 20240614
  Receipt Date: 20240614
  Transmission Date: 20240716
  Serious: Yes (Hospitalization, Other)
  Sender: FDA-Public Use
  Company Number: PE-STERISCIENCE B.V.-2024-ST-000812

PATIENT
  Age: 59 Year
  Sex: Female

DRUGS (7)
  1. OXACILLIN [Suspect]
     Active Substance: OXACILLIN SODIUM
     Indication: Staphylococcal infection
     Dosage: UNK
     Route: 042
  2. OXACILLIN [Suspect]
     Active Substance: OXACILLIN SODIUM
     Indication: Localised infection
  3. TIGECYCLINE [Suspect]
     Active Substance: TIGECYCLINE
     Indication: Staphylococcal infection
     Dosage: UNK
     Route: 042
  4. TIGECYCLINE [Suspect]
     Active Substance: TIGECYCLINE
     Indication: Localised infection
  5. CLINDAMYCIN [Concomitant]
     Active Substance: CLINDAMYCIN
     Indication: Product used for unknown indication
     Dosage: UNK
     Route: 065
  6. INSULIN LISPRO [Concomitant]
     Active Substance: INSULIN LISPRO
     Indication: Diabetes mellitus
     Dosage: BASAL BOLUS REGIMEN
     Route: 065
  7. NPH INSULIN [Concomitant]
     Active Substance: INSULIN BEEF
     Indication: Diabetes mellitus
     Dosage: UNK
     Route: 065

REACTIONS (1)
  - Therapy non-responder [Unknown]
